FAERS Safety Report 20991622 (Version 1)
Quarter: 2022Q2

REPORT INFORMATION
  Report Type: Spontaneous
  Country: US (occurrence: US)
  Receive Date: 20220622
  Receipt Date: 20220622
  Transmission Date: 20220721
  Serious: Yes (Other)
  Sender: FDA-Public Use
  Company Number: US-ROCHE-2856333

PATIENT
  Sex: Female

DRUGS (10)
  1. CLONAZEPAM [Suspect]
     Active Substance: CLONAZEPAM
     Indication: Product used for unknown indication
     Dosage: TAKE 1 TABLET AT BEDTIME
     Route: 065
  2. RITUXAN [Suspect]
     Active Substance: RITUXIMAB
     Indication: Chronic kidney disease
     Dosage: ONCE IN 2 WEEKS
     Route: 042
     Dates: start: 201711, end: 201809
  3. RITUXAN [Suspect]
     Active Substance: RITUXIMAB
     Indication: Tubulointerstitial nephritis
     Dosage: ONCE IN 2 WEEKS
     Route: 042
     Dates: start: 201711, end: 201809
  4. RITUXAN [Suspect]
     Active Substance: RITUXIMAB
     Indication: Behcet^s syndrome
     Dosage: ONCE IN 2 WEEKS
     Route: 042
     Dates: start: 201711, end: 201809
  5. RITUXAN [Suspect]
     Active Substance: RITUXIMAB
     Indication: Chronic kidney disease
     Route: 065
  6. RITUXAN [Suspect]
     Active Substance: RITUXIMAB
     Indication: Tubulointerstitial nephritis
     Route: 065
  7. RITUXAN [Suspect]
     Active Substance: RITUXIMAB
     Indication: Behcet^s syndrome
     Route: 065
  8. CELLCEPT [Suspect]
     Active Substance: MYCOPHENOLATE MOFETIL
     Indication: Tubulointerstitial nephritis
     Route: 065
  9. CELLCEPT [Suspect]
     Active Substance: MYCOPHENOLATE MOFETIL
     Indication: Behcet^s syndrome
     Route: 065
  10. OSELTAMIVIR [Suspect]
     Active Substance: OSELTAMIVIR
     Indication: Product used for unknown indication
     Route: 048

REACTIONS (5)
  - Cellulitis [Unknown]
  - Pneumonia [Unknown]
  - Urinary tract infection [Unknown]
  - Mouth ulceration [Unknown]
  - Fatigue [Unknown]
